FAERS Safety Report 24581411 (Version 1)
Quarter: 2024Q4

REPORT INFORMATION
  Report Type: Spontaneous
  Country: US (occurrence: US)
  Receive Date: 20241105
  Receipt Date: 20241105
  Transmission Date: 20250115
  Serious: No
  Sender: BRISTOL-MYERS SQUIBB COMPANY
  Company Number: US-BRISTOL-MYERS SQUIBB COMPANY-2024-172325

PATIENT
  Age: 65 Year
  Sex: Female
  Weight: 61.69 kg

DRUGS (1)
  1. REVLIMID [Suspect]
     Active Substance: LENALIDOMIDE
     Indication: Plasma cell myeloma
     Dosage: 1 CAPSULE DAILY FOR 14 DAYS, THEN 7 DAYS OFF
     Route: 048

REACTIONS (7)
  - Chills [Recovering/Resolving]
  - Tremor [Recovering/Resolving]
  - Headache [Recovering/Resolving]
  - Fatigue [Recovering/Resolving]
  - Haemoglobin decreased [Recovering/Resolving]
  - Dyspnoea [Recovering/Resolving]
  - Off label use [Unknown]
